FAERS Safety Report 13897290 (Version 1)
Quarter: 2017Q3

REPORT INFORMATION
  Report Type: Spontaneous
  Country: GB (occurrence: GB)
  Receive Date: 20170823
  Receipt Date: 20170823
  Transmission Date: 20171127
  Serious: Yes (Other)
  Sender: FDA-Public Use
  Company Number: GB-GLAXOSMITHKLINE-B0396653A

PATIENT
  Sex: Female

DRUGS (3)
  1. HEPATYRIX [Suspect]
     Active Substance: HEPATITIS A VACCINE, INACTIVATED\TYPHOID VACCINE
     Indication: PROPHYLAXIS
     Route: 064
     Dates: start: 20041207, end: 20041207
  2. MALARONE [Suspect]
     Active Substance: ATOVAQUONE\PROGUANIL HYDROCHLORIDE
     Indication: PRODUCT USED FOR UNKNOWN INDICATION
     Dosage: UNK
     Route: 064
     Dates: start: 200412, end: 200501
  3. STAMARIL [Suspect]
     Active Substance: YELLOW FEVER VIRUS STRAIN 17D-204 LIVE ANTIGEN
     Indication: PROPHYLAXIS
     Route: 064
     Dates: start: 20041207

REACTIONS (3)
  - Developmental hip dysplasia [Not Recovered/Not Resolved]
  - Birth mark [Not Recovered/Not Resolved]
  - Maternal exposure during pregnancy [Unknown]

NARRATIVE: CASE EVENT DATE: 20050825
